FAERS Safety Report 22719121 (Version 2)
Quarter: 2023Q4

REPORT INFORMATION
  Report Type: Other
  Country: US (occurrence: US)
  Receive Date: 20230718
  Receipt Date: 20231122
  Transmission Date: 20240110
  Serious: No
  Sender: FDA-Public Use
  Company Number: US-UROVANT SCIENCES GMBH-202305-URV-000782

PATIENT
  Sex: Female

DRUGS (1)
  1. GEMTESA [Suspect]
     Active Substance: VIBEGRON
     Indication: Hypertonic bladder
     Dosage: 75 MG, QD
     Route: 048
     Dates: end: 202304

REACTIONS (7)
  - Dizziness [Unknown]
  - Secretion discharge [Unknown]
  - Hordeolum [Unknown]
  - Cystitis [Unknown]
  - Muscular weakness [Recovering/Resolving]
  - Fluid imbalance [Unknown]
  - Diarrhoea [Unknown]
